FAERS Safety Report 5843769-1 (Version None)
Quarter: 2008Q3

REPORT INFORMATION
  Report Type: 
  Country: None (occurrence: None)
  Receive Date: 20080731
  Receipt Date: 20080430
  Transmission Date: 20090109
  Serious: No
  Sender: FDA-Public Use
  Company Number: US200805000046

PATIENT
  Age: 54 Year
  Sex: Male
  Weight: 83.9 kg

DRUGS (6)
  1. BYETTA [Suspect]
     Indication: TYPE 2 DIABETES MELLITUS
     Dosage: 5 UG, 2/D, SUBCUTANEOUS
     Route: 058
     Dates: start: 20080401
  2. EXENATIDE 5MCG PEN, DISPOSABLE DEVICE (EXENATIDE PEN (5MCG)) PEN,DISPO [Concomitant]
  3. FISH OIL (FISH OIL) [Concomitant]
  4. CINNAMON (CINNAMON) [Concomitant]
  5. COREG [Concomitant]
  6. VITAMIN TAB [Concomitant]

REACTIONS (1)
  - EPISTAXIS [None]
